FAERS Safety Report 19367149 (Version 1)
Quarter: 2021Q2

REPORT INFORMATION
  Report Type: Other
  Country: US (occurrence: US)
  Receive Date: 20210602
  Receipt Date: 20210602
  Transmission Date: 20210717
  Serious: Yes (Other)
  Sender: FDA-Public Use
  Company Number: US-SIGMAPHARM LABORATORIES, LLC-2021SIG00021

PATIENT
  Age: 50 Year
  Sex: Male

DRUGS (10)
  1. ASENAPINE. [Suspect]
     Active Substance: ASENAPINE
     Indication: DEPRESSION
     Dosage: 20 MG, 1X/DAY AT BEDTIME
     Route: 060
     Dates: start: 20210223, end: 20210310
  2. VYVANSE [Concomitant]
     Active Substance: LISDEXAMFETAMINE DIMESYLATE
     Dosage: 50 MG, 1X/DAY MORNING
  3. WELLBUTRIN XL [Concomitant]
     Active Substance: BUPROPION HYDROCHLORIDE
     Dosage: 300 MG, 1X/DAY MORNING
  4. LAMOTRIGINE. [Concomitant]
     Active Substance: LAMOTRIGINE
     Dosage: 300 MG, 1X/DAY MORNING
  5. TRINTELLIX [Concomitant]
     Active Substance: VORTIOXETINE HYDROBROMIDE
     Dosage: 10 MG, 1X/DAY
  6. ALPRAZOLAM. [Concomitant]
     Active Substance: ALPRAZOLAM
     Dosage: 1 MG, 1X/DAY AT BEDTIME
  7. ALPRAZOLAM. [Concomitant]
     Active Substance: ALPRAZOLAM
     Dosage: 1 MG, UP TO 1X/DAY AS NEEDED
  8. MIRTAZAPINE. [Concomitant]
     Active Substance: MIRTAZAPINE
     Dosage: 45 MG, 1X/DAY AT BEDTIME
  9. ALPRAZOLAM XR [Concomitant]
     Active Substance: ALPRAZOLAM
     Dosage: 3 MG, 1X/DAY MORNING
  10. LAMOTRIGINE. [Concomitant]
     Active Substance: LAMOTRIGINE
     Dosage: 150 MG, 1X/DAY BEDTIME

REACTIONS (10)
  - Drug ineffective for unapproved indication [Recovered/Resolved]
  - Depressive symptom [Recovering/Resolving]
  - Depressed mood [Recovering/Resolving]
  - Product taste abnormal [Recovered/Resolved]
  - Self-injurious ideation [Recovering/Resolving]
  - Tongue ulceration [Recovered/Resolved]
  - Product solubility abnormal [Recovered/Resolved]
  - Off label use [Recovered/Resolved]
  - Suicidal ideation [Recovering/Resolving]
  - Product substitution issue [Recovered/Resolved]

NARRATIVE: CASE EVENT DATE: 202102
